FAERS Safety Report 6572656-9 (Version None)
Quarter: 2010Q1

REPORT INFORMATION
  Report Type: 
  Country: None (occurrence: None)
  Receive Date: 20100205
  Receipt Date: 20100131
  Transmission Date: 20100710
  Serious: Yes (Death)
  Sender: FDA-Public Use
  Company Number: DE-ABBOTT-10P-062-0623288-00

PATIENT
  Sex: Male
  Weight: 75 kg

DRUGS (2)
  1. HUMIRA [Suspect]
     Indication: PSORIASIS
     Route: 058
     Dates: start: 20091221, end: 20100109
  2. SILKIS [Concomitant]
     Indication: PSORIASIS
     Route: 061
     Dates: end: 20100109

REACTIONS (1)
  - COMPLETED SUICIDE [None]
